FAERS Safety Report 24009903 (Version 1)
Quarter: 2024Q2

REPORT INFORMATION
  Report Type: Spontaneous
  Country: US (occurrence: US)
  Receive Date: 20240625
  Receipt Date: 20240625
  Transmission Date: 20240717
  Serious: No
  Sender: FDA-Public Use
  Company Number: US-FERRINGPH-2024FE01986

PATIENT
  Age: 34 Year
  Sex: Female

DRUGS (2)
  1. REBYOTA [Suspect]
     Active Substance: DONOR HUMAN STOOL
     Indication: Clostridium difficile colitis
     Dosage: 150 ML, ONCE/SINGLE
     Route: 054
     Dates: start: 20240517, end: 20240517
  2. REBYOTA [Suspect]
     Active Substance: DONOR HUMAN STOOL
     Dosage: 150 ML, ONCE/SINGLE
     Route: 054
     Dates: start: 20240216, end: 20240216

REACTIONS (2)
  - Clostridium test positive [Not Recovered/Not Resolved]
  - Off label use [Unknown]

NARRATIVE: CASE EVENT DATE: 20240304
